APPROVED DRUG PRODUCT: POLYETHYLENE GLYCOL 3350
Active Ingredient: POLYETHYLENE GLYCOL 3350
Strength: 17GM/SCOOPFUL
Dosage Form/Route: FOR SOLUTION;ORAL
Application: A203928 | Product #001
Applicant: STRIDES PHARMA GLOBAL PTE LTD
Approved: Aug 24, 2016 | RLD: No | RS: No | Type: OTC